FAERS Safety Report 19307551 (Version 1)
Quarter: 2021Q2

REPORT INFORMATION
  Report Type: Spontaneous
  Country: US (occurrence: US)
  Receive Date: 20210526
  Receipt Date: 20210526
  Transmission Date: 20210717
  Serious: Yes (Other)
  Sender: FDA-Public Use
  Company Number: US-ABBVIE-21K-163-3921260-00

PATIENT

DRUGS (7)
  1. BENDAMUSTINE [Suspect]
     Active Substance: BENDAMUSTINE
     Indication: MANTLE CELL LYMPHOMA
     Route: 065
  2. IMBRUVICA [Suspect]
     Active Substance: IBRUTINIB
     Indication: MANTLE CELL LYMPHOMA
     Route: 048
  3. RITUXIMAB. [Suspect]
     Active Substance: RITUXIMAB
     Indication: MANTLE CELL LYMPHOMA
     Route: 065
  4. VINCRISTINE [Suspect]
     Active Substance: VINCRISTINE
     Indication: MANTLE CELL LYMPHOMA
     Route: 065
  5. DOXORUBICIN HYDROCHLORIDE. [Suspect]
     Active Substance: DOXORUBICIN HYDROCHLORIDE
     Indication: MANTLE CELL LYMPHOMA
     Route: 065
  6. PREDNISOLONE. [Suspect]
     Active Substance: PREDNISOLONE
     Indication: MANTLE CELL LYMPHOMA
     Route: 065
  7. CYCLOPHOSPHAMIDE. [Suspect]
     Active Substance: CYCLOPHOSPHAMIDE
     Indication: MANTLE CELL LYMPHOMA
     Route: 065

REACTIONS (24)
  - Atrial fibrillation [Unknown]
  - Neutropenia [Unknown]
  - Pyrexia [Unknown]
  - Vomiting [Unknown]
  - Off label use [Unknown]
  - Dyspnoea [Unknown]
  - Diarrhoea [Unknown]
  - Fatigue [Unknown]
  - Haemorrhage [Unknown]
  - Pneumonia [Unknown]
  - Thrombocytopenia [Unknown]
  - Arthralgia [Unknown]
  - Dehydration [Unknown]
  - Hypertension [Unknown]
  - Arrhythmia [Unknown]
  - Product use in unapproved indication [Unknown]
  - Oedema [Unknown]
  - Renal failure [Unknown]
  - Anaemia [Unknown]
  - Infection [Unknown]
  - Rash [Unknown]
  - Cardiac failure congestive [Unknown]
  - Asthenia [Unknown]
  - Nausea [Unknown]
